FAERS Safety Report 10904308 (Version 1)
Quarter: 2015Q1

REPORT INFORMATION
  Report Type: Spontaneous
  Country: ZA (occurrence: ZA)
  Receive Date: 20150311
  Receipt Date: 20150311
  Transmission Date: 20150721
  Serious: Yes (Death)
  Sender: FDA-Public Use
  Company Number: ZA-PFIZER INC-2015083615

PATIENT
  Age: 82 Year
  Sex: Female

DRUGS (6)
  1. LYRICA [Suspect]
     Active Substance: PREGABALIN
     Indication: NEUROPATHY PERIPHERAL
     Dosage: 75 MG, UNK
     Route: 048
     Dates: start: 201401
  2. LIPANTHYL [Concomitant]
     Active Substance: FENOFIBRATE
     Indication: BLOOD CHOLESTEROL
     Dosage: 200 MG, UNK
     Route: 048
     Dates: start: 201212
  3. ECOTRIN [Concomitant]
     Active Substance: ASPIRIN
     Indication: ANTICOAGULANT THERAPY
     Dosage: 81 MG, UNK
     Route: 048
     Dates: start: 201408
  4. BE-TABS PYRIDOXINE HCL [Concomitant]
     Indication: VITAMIN B6 DEFICIENCY
     Dosage: 20 UNK, UNK
     Route: 048
     Dates: start: 201412
  5. NEUROBION [Concomitant]
     Active Substance: CYANOCOBALAMIN\PYRIDOXINE\THIAMINE
     Indication: NUTRITIONAL SUPPLEMENTATION
     Dosage: UNK
     Route: 048
     Dates: start: 201402
  6. EXFORGE [Concomitant]
     Active Substance: AMLODIPINE BESYLATE\VALSARTAN
     Indication: HYPERTENSION
     Dosage: [AMLODIPINE BESILATE 5 MG]/[VALSARTAN 160 MG], DAILY
     Route: 048
     Dates: start: 201212

REACTIONS (1)
  - Death [Fatal]

NARRATIVE: CASE EVENT DATE: 20150123
